FAERS Safety Report 5340028-0 (Version None)
Quarter: 2007Q2

REPORT INFORMATION
  Report Type: 
  Country: None (occurrence: None)
  Receive Date: 20070405
  Receipt Date: 20061102
  Transmission Date: 20071010
  Serious: No
  Sender: FDA-Public Use
  Company Number: US200611000640

PATIENT
  Sex: Female

DRUGS (17)
  1. CYMBALTA [Suspect]
     Indication: DEPRESSION
     Dosage: SEE IMAGE
     Dates: start: 20061001, end: 20061001
  2. CYMBALTA [Suspect]
     Indication: DEPRESSION
     Dosage: SEE IMAGE
     Dates: start: 20061001
  3. LASIX [Concomitant]
  4. ACCUPRIL [Concomitant]
  5. NEXIUM [Concomitant]
  6. LIPITOR [Concomitant]
  7. POTASSIUM (POTASSIUM) [Concomitant]
  8. AMIODARONE HCL [Concomitant]
  9. SYNTHROID [Concomitant]
  10. TEGRETOL [Concomitant]
  11. COUMADIN (FLUTICASONE PROPIONATE, SALMETEROL XINAFOATE) [Concomitant]
  12. ZAROXOLYN [Concomitant]
  13. ALDACTONE [Concomitant]
  14. CALCIUM WITH VITAMIN D (CALCIUM PHOSPHATE, CALCIUM SODIUM LACTATE, ERG [Concomitant]
  15. MAGNESIUM OXIDE (MAGNESIUM OXIDE) [Concomitant]
  16. DOCUSATE CALCIUM (DOCUSATE CALCIUM) [Concomitant]
  17. AMOXICILLIN [Concomitant]

REACTIONS (1)
  - FLUID RETENTION [None]
